FAERS Safety Report 25868350 (Version 1)
Quarter: 2025Q4

REPORT INFORMATION
  Report Type: Spontaneous
  Country: US (occurrence: US)
  Receive Date: 20251001
  Receipt Date: 20251001
  Transmission Date: 20260118
  Serious: No
  Sender: BOEHRINGER INGELHEIM
  Company Number: US-BoehringerIngelheim-2025-BI-098237

PATIENT

DRUGS (2)
  1. MELOXICAM [Suspect]
     Active Substance: MELOXICAM
     Indication: Arthritis
  2. TYLENOL [Concomitant]
     Active Substance: ACETAMINOPHEN
     Indication: Arthritis

REACTIONS (3)
  - Liver injury [Unknown]
  - Nephropathy [Unknown]
  - Pain [Unknown]
